FAERS Safety Report 9286918 (Version 1)
Quarter: 2013Q2

REPORT INFORMATION
  Report Type: Spontaneous
  Country: US (occurrence: US)
  Receive Date: 20130513
  Receipt Date: 20130513
  Transmission Date: 20140414
  Serious: No
  Sender: FDA-Public Use
  Company Number: US-ASTRAZENECA-2013SE30868

PATIENT
  Age: 52 Year
  Sex: Female
  Weight: 61.2 kg

DRUGS (5)
  1. SYMBICORT [Suspect]
     Indication: ASTHMA
     Dosage: 320MCG, 2 PUFFS BID
     Route: 055
     Dates: start: 2011
  2. SYMBICORT [Suspect]
     Indication: CHRONIC OBSTRUCTIVE PULMONARY DISEASE
     Dosage: 320MCG, 2 PUFFS BID
     Route: 055
     Dates: start: 2011
  3. SYMBICORT [Suspect]
     Indication: ASTHMA
     Dosage: 1 PUFF UP TO 5-8 TIMES A DAY
     Route: 055
  4. SYMBICORT [Suspect]
     Indication: CHRONIC OBSTRUCTIVE PULMONARY DISEASE
     Dosage: 1 PUFF UP TO 5-8 TIMES A DAY
     Route: 055
  5. ALBUTEROL [Concomitant]

REACTIONS (8)
  - Blood blister [Not Recovered/Not Resolved]
  - Herpes zoster [Recovered/Resolved with Sequelae]
  - Dyspnoea [Unknown]
  - Stress [Unknown]
  - Pruritus [Not Recovered/Not Resolved]
  - Rash pustular [Not Recovered/Not Resolved]
  - Intentional drug misuse [Unknown]
  - Drug dose omission [Unknown]
